FAERS Safety Report 4664616-X (Version None)
Quarter: 2005Q2

REPORT INFORMATION
  Report Type: 
  Country: None (occurrence: None)
  Receive Date: 20050518
  Receipt Date: 20050505
  Transmission Date: 20051028
  Serious: Yes (Hospitalization)
  Sender: FDA-Public Use
  Company Number: US-GLAXOSMITHKLINE-A0557514A

PATIENT
  Age: 74 Year
  Sex: Female
  Weight: 90.9 kg

DRUGS (2)
  1. AQUAFRESH FLUORIDE PROTECTION TOOTHPASTE PUMP [Suspect]
     Indication: DENTAL CLEANING
     Dates: start: 19750101
  2. FLECAINIDE ACETATE [Concomitant]

REACTIONS (1)
  - CHONDROPATHY [None]
